FAERS Safety Report 5444555-7 (Version None)
Quarter: 2007Q3

REPORT INFORMATION
  Report Type: 
  Country: None (occurrence: None)
  Receive Date: 20070906
  Receipt Date: 20070829
  Transmission Date: 20080115
  Serious: Yes (Disabling)
  Sender: FDA-Public Use
  Company Number: BR-AVENTIS-200717218GDDC

PATIENT
  Sex: Female
  Weight: 61 kg

DRUGS (15)
  1. LANTUS [Suspect]
     Route: 058
     Dates: start: 20020101, end: 20070801
  2. LANTUS [Suspect]
     Route: 058
     Dates: start: 20020101, end: 20070801
  3. LANTUS [Suspect]
     Route: 058
     Dates: start: 20070801, end: 20070803
  4. LANTUS [Suspect]
     Route: 058
     Dates: start: 20070806, end: 20070801
  5. LANTUS [Suspect]
     Route: 058
     Dates: start: 20070801
  6. OPTIPEN (INSULIN PUMP) [Suspect]
  7. OPTIPEN (INSULIN PUMP) [Suspect]
  8. OMEPRAZOLE [Concomitant]
     Indication: GASTROINTESTINAL DISORDER
     Dosage: DOSE QUANTITY: 1
     Route: 048
     Dates: start: 20050101
  9. LASIX [Concomitant]
     Indication: RENAL DISORDER
     Dosage: DOSE QUANTITY: 1
     Route: 048
     Dates: start: 20070701
  10. ALDACTONE [Concomitant]
     Dosage: DOSE QUANTITY: 1
     Route: 048
     Dates: start: 20070701
  11. MOTILIUM [Concomitant]
     Dosage: DOSE QUANTITY: 2
     Route: 048
     Dates: start: 20070601
  12. ACFOL [Concomitant]
     Indication: LIVER DISORDER
     Dosage: DOSE QUANTITY: 1
     Route: 048
     Dates: start: 20070601
  13. COMPLEX B [Concomitant]
     Dosage: DOSE QUANTITY: 1
     Route: 048
  14. PROTOS [Concomitant]
     Indication: LIVER DISORDER
     Dosage: DOSE QUANTITY: 1
     Route: 048
     Dates: start: 20070601
  15. NOVORAPID [Concomitant]
     Route: 058
     Dates: start: 20020101

REACTIONS (8)
  - ASTHENIA [None]
  - HYPERGLYCAEMIA [None]
  - HYPOGLYCAEMIA [None]
  - INJECTION SITE INDURATION [None]
  - MEDICATION ERROR [None]
  - PHARMACEUTICAL PRODUCT COMPLAINT [None]
  - RENAL DISORDER [None]
  - SOMNOLENCE [None]
